FAERS Safety Report 20255074 (Version 1)
Quarter: 2021Q4

REPORT INFORMATION
  Report Type: Spontaneous
  Country: JP (occurrence: JP)
  Receive Date: 20211230
  Receipt Date: 20211230
  Transmission Date: 20220303
  Serious: Yes (Death, Hospitalization)
  Sender: FDA-Public Use
  Company Number: JP-ACTELION-A-CH2019-199612

PATIENT
  Age: 71 Year
  Sex: Female

DRUGS (7)
  1. UPTRAVI [Suspect]
     Active Substance: SELEXIPAG
     Indication: Pulmonary arterial hypertension
     Dosage: 0.4 MG, QD
     Route: 048
     Dates: start: 20191121, end: 2019
  2. UPTRAVI [Suspect]
     Active Substance: SELEXIPAG
     Route: 048
     Dates: end: 20211217
  3. BOS TAURUS ADRENAL CORTEX CORTICOSTEROIDS [Suspect]
     Active Substance: BOS TAURUS ADRENAL CORTEX CORTICOSTEROIDS
     Indication: Product used for unknown indication
     Dosage: UNK
     Route: 042
     Dates: start: 2019
  4. OPSUMIT [Concomitant]
     Active Substance: MACITENTAN
     Indication: Pulmonary arterial hypertension
     Dosage: 10 MG, QD
     Route: 048
     Dates: start: 201909, end: 2019
  5. OPSUMIT [Concomitant]
     Active Substance: MACITENTAN
     Route: 048
     Dates: end: 20211217
  6. REVATIO [Concomitant]
     Active Substance: SILDENAFIL CITRATE
     Indication: Pulmonary arterial hypertension
     Dosage: UNK
     Dates: start: 201909, end: 2019
  7. REVATIO [Concomitant]
     Active Substance: SILDENAFIL CITRATE
     Dates: end: 20211217

REACTIONS (2)
  - Pulmonary arterial hypertension [Fatal]
  - Infection [Recovered/Resolved]

NARRATIVE: CASE EVENT DATE: 20190101
